FAERS Safety Report 8550345-9 (Version None)
Quarter: 2012Q3

REPORT INFORMATION
  Report Type: 
  Country: None (occurrence: None)
  Receive Date: 20120730
  Receipt Date: 20120725
  Transmission Date: 20120928
  Serious: Yes (Hospitalization)
  Sender: FDA-Public Use
  Company Number: JP-PFIZER INC-2012179411

PATIENT
  Age: 73 Year
  Sex: Male

DRUGS (4)
  1. MIRTAZAPINE [Suspect]
     Indication: ANXIETY
  2. ZOLOFT [Suspect]
     Indication: INSOMNIA
     Route: 048
  3. MIRTAZAPINE [Suspect]
     Indication: INSOMNIA
     Route: 048
  4. ZOLOFT [Suspect]
     Indication: ANXIETY

REACTIONS (1)
  - STATUS EPILEPTICUS [None]
